FAERS Safety Report 6284987-0 (Version None)
Quarter: 2009Q3

REPORT INFORMATION
  Report Type: 
  Country: None (occurrence: None)
  Receive Date: 20090727
  Receipt Date: 20090415
  Transmission Date: 20100115
  Serious: No
  Sender: FDA-Public Use
  Company Number: US-ABBOTT-09P-163-0568406-00

PATIENT
  Sex: Male

DRUGS (3)
  1. RITONAVIR SOFT GELATIN CAPSULES [Suspect]
     Indication: HIV TEST POSITIVE
     Dates: start: 20060101
  2. REYATAZ [Suspect]
     Indication: HIV TEST POSITIVE
     Dates: start: 20060101, end: 20080101
  3. REYATAZ [Suspect]
     Dates: start: 20080101

REACTIONS (1)
  - NEPHROLITHIASIS [None]
